FAERS Safety Report 5142288-8 (Version None)
Quarter: 2006Q4

REPORT INFORMATION
  Report Type: 
  Country: None (occurrence: None)
  Receive Date: 20061027
  Receipt Date: 20061019
  Transmission Date: 20070319
  Serious: Yes (Other)
  Sender: FDA-Public Use
  Company Number: 2006-149263-NL

PATIENT
  Sex: Male
  Weight: 1.9 kg

DRUGS (1)
  1. NUVARING [Suspect]

REACTIONS (7)
  - CAESAREAN SECTION [None]
  - DRUG EXPOSURE DURING PREGNANCY [None]
  - EXOMPHALOS [None]
  - GASTROOESOPHAGEAL REFLUX DISEASE [None]
  - NEONATAL DISORDER [None]
  - PREMATURE BABY [None]
  - SLEEP APNOEA SYNDROME [None]
